FAERS Safety Report 6153485-7 (Version None)
Quarter: 2009Q2

REPORT INFORMATION
  Report Type: 
  Country: None (occurrence: None)
  Receive Date: 20090413
  Receipt Date: 20080617
  Transmission Date: 20091009
  Serious: No
  Sender: FDA-Public Use
  Company Number: US-ABBOTT-08P-163-0457945-00

PATIENT
  Sex: Male

DRUGS (4)
  1. LUPRON [Suspect]
     Indication: DRUG USE FOR UNKNOWN INDICATION
     Route: 030
     Dates: start: 20070601, end: 20080107
  2. LISINOPRIL [Concomitant]
     Indication: HYPERTENSION
     Route: 048
  3. ZOLPIDEM TARTRATE [Concomitant]
     Indication: INSOMNIA
     Route: 048
  4. LORAZEPAM [Concomitant]
     Indication: DRUG USE FOR UNKNOWN INDICATION
     Route: 048

REACTIONS (9)
  - BLOOD PRESSURE FLUCTUATION [None]
  - BREAST ENLARGEMENT [None]
  - DROOLING [None]
  - DYSARTHRIA [None]
  - DYSPNOEA [None]
  - HOT FLUSH [None]
  - MUSCLE ATROPHY [None]
  - MUSCLE SPASMS [None]
  - UNEVALUABLE EVENT [None]
